FAERS Safety Report 14726705 (Version 1)
Quarter: 2018Q2

REPORT INFORMATION
  Report Type: Report from Study
  Country: DE (occurrence: DE)
  Receive Date: 20180406
  Receipt Date: 20180406
  Transmission Date: 20180711
  Serious: Yes (Death, Other)
  Sender: FDA-Public Use
  Company Number: DE-ACCORD-065393

PATIENT

DRUGS (4)
  1. TRETINOIN/TRETINOIN TOCOFERIL [Suspect]
     Active Substance: TRETINOIN
     Indication: PRODUCT USED FOR UNKNOWN INDICATION
     Dosage: INDUCTION: FOR PATIENTS 20 YEARS OF AGE OR YOUNGER, THE ATRA DOSE WAS ADJUSTED TO 25?MG/M^2/D
     Route: 048
  2. METHOTREXATE. [Suspect]
     Active Substance: METHOTREXATE
     Indication: PRODUCT USED FOR UNKNOWN INDICATION
     Dosage: 15 D/3 MO, 2 Y
     Route: 030
  3. IDARUBICIN [Suspect]
     Active Substance: IDARUBICIN
     Indication: PRODUCT USED FOR UNKNOWN INDICATION
     Dosage: 12MG/M^2/D GIVEN ON DAYS 2, 4, 6 AND 8 (OLDER THAN 70: NO DOSE ON DAY 8)
     Route: 040
  4. MERCAPTOPURINE/MERCAPTOPURINE ANHYDROUS [Suspect]
     Active Substance: MERCAPTOPURINE
     Indication: PRODUCT USED FOR UNKNOWN INDICATION
     Dosage: WBC COUNT WAS LESS THAN 3.5 X 10^9/L?DISCONTINUED IF WBC WAS LESS THAN 2.5 X 10^9/L
     Route: 048

REACTIONS (12)
  - Acute promyelocytic leukaemia differentiation syndrome [Unknown]
  - Infection [Fatal]
  - Mucosal inflammation [Unknown]
  - Haemorrhage [Fatal]
  - Hepatotoxicity [Unknown]
  - Cytopenia [Recovered/Resolved]
  - Chondrosarcoma [Unknown]
  - Multiple organ dysfunction syndrome [Fatal]
  - Cardiotoxicity [Unknown]
  - Leukaemia recurrent [Recovered/Resolved]
  - Hepatic cirrhosis [Fatal]
  - Acute myeloid leukaemia [Unknown]
